FAERS Safety Report 20679125 (Version 4)
Quarter: 2022Q3

REPORT INFORMATION
  Report Type: Spontaneous
  Country: NP (occurrence: NP)
  Receive Date: 20220406
  Receipt Date: 20220719
  Transmission Date: 20221027
  Serious: Yes (Congenital Anomaly, Other)
  Sender: FDA-Public Use
  Company Number: NP-TORRENT-00000014

PATIENT
  Sex: Male
  Weight: 3 kg

DRUGS (5)
  1. OLANZAPINE [Suspect]
     Active Substance: OLANZAPINE
     Indication: Schizophrenia
     Dosage: UNKNOWN
     Route: 064
  2. CALCIUM [Concomitant]
     Active Substance: CALCIUM
     Indication: Supplementation therapy
     Dosage: UNKNOWN
     Route: 064
  3. FOLIC ACID [Concomitant]
     Active Substance: FOLIC ACID
     Indication: Supplementation therapy
     Dosage: UNKNOWN
     Route: 064
  4. IRON [Concomitant]
     Active Substance: IRON
     Indication: Supplementation therapy
     Dosage: UNKNOWN
     Route: 064
  5. TETANUS TOXOIDS [Concomitant]
     Active Substance: TETANUS TOXOIDS
     Indication: Product used for unknown indication
     Dosage: UNKNOWN
     Route: 064

REACTIONS (4)
  - Talipes [Unknown]
  - Foetal exposure during pregnancy [Unknown]
  - Sedation [Unknown]
  - Maternal exposure during breast feeding [Unknown]
